FAERS Safety Report 8268243-7 (Version None)
Quarter: 2012Q2

REPORT INFORMATION
  Report Type: 
  Country: None (occurrence: None)
  Receive Date: 20120409
  Receipt Date: 20120328
  Transmission Date: 20120825
  Serious: Yes (Other)
  Sender: FDA-Public Use
  Company Number: US-ELI_LILLY_AND_COMPANY-US201109000151

PATIENT
  Sex: Female
  Weight: 51.701 kg

DRUGS (17)
  1. FORTEO [Suspect]
     Dosage: 20 UG, QD
     Route: 065
  2. ASPIRIN [Concomitant]
  3. SYNTHROID [Concomitant]
  4. PROZAC [Concomitant]
  5. COLACE [Concomitant]
  6. FORTEO [Suspect]
     Indication: OSTEOPOROSIS
     Dosage: 20 UG, QD
     Dates: start: 20110623
  7. FORTEO [Suspect]
     Dosage: 20 UG, QD
  8. PRIMIDONE [Concomitant]
  9. VYTORIN [Concomitant]
  10. XANAX [Concomitant]
  11. PEPCID [Concomitant]
  12. NEXIUM [Concomitant]
  13. TUMS                               /00193601/ [Concomitant]
  14. ARICEPT [Concomitant]
  15. BUPROPION HYDROCHLORIDE [Concomitant]
  16. MULTI-VITAMINS [Concomitant]
  17. VITAMIN D [Concomitant]

REACTIONS (6)
  - INFESTATION [None]
  - PRURITUS [None]
  - CONTUSION [None]
  - INJECTION SITE HAEMATOMA [None]
  - RASH [None]
  - SYSTEMIC LUPUS ERYTHEMATOSUS [None]
